FAERS Safety Report 8435908-3 (Version None)
Quarter: 2012Q2

REPORT INFORMATION
  Report Type: 
  Country: None (occurrence: None)
  Receive Date: 20120614
  Receipt Date: 20120606
  Transmission Date: 20120825
  Serious: Yes (Hospitalization, Other)
  Sender: FDA-Public Use
  Company Number: US-ROCHE-1047371

PATIENT
  Sex: Male
  Weight: 77.18 kg

DRUGS (3)
  1. ZYRTEC [Concomitant]
  2. ACCUTANE [Suspect]
     Indication: ACNE
     Dates: start: 20021221, end: 20030604
  3. ACCUTANE [Suspect]

REACTIONS (6)
  - WEIGHT DECREASED [None]
  - INTESTINAL OBSTRUCTION [None]
  - DRY SKIN [None]
  - ABDOMINAL DISCOMFORT [None]
  - CROHN'S DISEASE [None]
  - INFLAMMATORY BOWEL DISEASE [None]
